APPROVED DRUG PRODUCT: MEGESTROL ACETATE
Active Ingredient: MEGESTROL ACETATE
Strength: 40MG/ML
Dosage Form/Route: SUSPENSION;ORAL
Application: A075671 | Product #001 | TE Code: AB
Applicant: STRIDES PHARMA INTERNATIONAL AG
Approved: Jul 25, 2001 | RLD: No | RS: Yes | Type: RX